FAERS Safety Report 15525612 (Version 1)
Quarter: 2018Q4

REPORT INFORMATION
  Report Type: Spontaneous
  Country: FR (occurrence: FR)
  Receive Date: 20181019
  Receipt Date: 20181019
  Transmission Date: 20190205
  Serious: Yes (Hospitalization)
  Sender: FDA-Public Use
  Company Number: FR-PFIZER INC-2018413909

PATIENT
  Age: 68 Year
  Sex: Male
  Weight: 85 kg

DRUGS (3)
  1. METHYLPREDNISOLONE SODIUM SUCCINATE. [Suspect]
     Active Substance: METHYLPREDNISOLONE SODIUM SUCCINATE
     Indication: TUBERCULOSIS
     Dosage: 1 MG/KG, 1X/DAY
     Route: 042
     Dates: start: 20180711
  2. CORTANCYL [Suspect]
     Active Substance: PREDNISONE
     Indication: TUBERCULOSIS
     Dosage: 40 MG, 1X/DAY
     Route: 048
     Dates: start: 20180803
  3. RIMIFON [Suspect]
     Active Substance: ISONIAZID
     Indication: TUBERCULOSIS
     Dosage: 300 MG, 1X/DAY
     Route: 048
     Dates: start: 20180707, end: 20180709

REACTIONS (1)
  - Confusional state [Recovered/Resolved]

NARRATIVE: CASE EVENT DATE: 20180718
